FAERS Safety Report 7568539 (Version 5)
Quarter: 2012Q4

REPORT INFORMATION
  Report Type: 
  Country: JP (occurrence: JP)
  Receive Date: 20100831
  Receipt Date: 20121206
  Transmission Date: 20130627
  Serious: Yes (Life-Threatening, Hospitalization)
  Sender: FDA-Public Use
  Company Number: JP-ELI_LILLY_AND_COMPANY-JP201008005671

PATIENT
  Age: 70 Year
  Sex: Female

DRUGS (3)
  1. ALIMTA [Suspect]
     Indication: LUNG ADENOCARCINOMA RECURRENT
     Dosage: 600 mg, UNK
     Route: 042
     Dates: start: 20100414, end: 20100928
  2. CISPLATIN [Concomitant]
     Indication: LUNG ADENOCARCINOMA RECURRENT
     Dosage: 100 mg, UNK
     Route: 042
     Dates: start: 20100414
  3. AVASTIN [Concomitant]
     Indication: LUNG ADENOCARCINOMA RECURRENT
     Dosage: 600 mg, UNK
     Route: 042
     Dates: start: 20100414, end: 20111018

REACTIONS (1)
  - Renal salt-wasting syndrome [Recovered/Resolved]
